FAERS Safety Report 11452419 (Version 1)
Quarter: 2015Q3

REPORT INFORMATION
  Report Type: Spontaneous
  Country: US (occurrence: US)
  Receive Date: 20150831
  Receipt Date: 20150831
  Transmission Date: 20151125
  Serious: No
  Sender: FDA-Public Use
  Company Number: US-ELI_LILLY_AND_COMPANY-US200908000853

PATIENT
  Age: 43 Year
  Sex: Female

DRUGS (2)
  1. CYMBALTA [Suspect]
     Active Substance: DULOXETINE HYDROCHLORIDE
     Indication: NEURALGIA
     Dosage: 30 MG, DAILY (1/D)
     Dates: start: 20090723
  2. CYMBALTA [Suspect]
     Active Substance: DULOXETINE HYDROCHLORIDE
     Dosage: 60 MG, DAILY (1/D)
     Dates: start: 20090806

REACTIONS (6)
  - Dyspepsia [Unknown]
  - Pollakiuria [Unknown]
  - Intentional product misuse [Unknown]
  - Somnolence [Unknown]
  - Fatigue [Unknown]
  - Middle insomnia [Unknown]

NARRATIVE: CASE EVENT DATE: 20090723
